FAERS Safety Report 9463341 (Version 1)
Quarter: 2013Q3

REPORT INFORMATION
  Report Type: Spontaneous
  Country: CA (occurrence: CA)
  Receive Date: 20130819
  Receipt Date: 20130819
  Transmission Date: 20140515
  Serious: Yes (Other)
  Sender: FDA-Public Use
  Company Number: CA-ROCHE-1262423

PATIENT
  Age: 72 Year
  Sex: Female
  Weight: 62 kg

DRUGS (8)
  1. MYCOPHENOLATE MOFETIL [Suspect]
     Indication: PRODUCT USED FOR UNKNOWN INDICATION
     Route: 048
  2. AMIODARONE [Suspect]
     Indication: PRODUCT USED FOR UNKNOWN INDICATION
     Route: 065
  3. EPREX [Suspect]
     Indication: PRODUCT USED FOR UNKNOWN INDICATION
     Route: 042
  4. EPREX [Suspect]
     Route: 042
  5. TACROLIMUS [Suspect]
     Indication: PRODUCT USED FOR UNKNOWN INDICATION
     Route: 048
  6. VENOFER [Concomitant]
     Route: 042
  7. WARFARIN [Concomitant]
     Route: 065
  8. ASA ENTERIC COATED [Concomitant]

REACTIONS (3)
  - Anti-erythropoietin antibody negative [Not Recovered/Not Resolved]
  - Aplasia pure red cell [Not Recovered/Not Resolved]
  - Haemoglobin decreased [Not Recovered/Not Resolved]
